FAERS Safety Report 8184585-8 (Version None)
Quarter: 2012Q1

REPORT INFORMATION
  Report Type: 
  Country: None (occurrence: None)
  Receive Date: 20120305
  Receipt Date: 20120229
  Transmission Date: 20120608
  Serious: Yes (Death)
  Sender: FDA-Public Use
  Company Number: TN-SANOFI-AVENTIS-2012SA013893

PATIENT
  Age: 50 Year
  Sex: Male

DRUGS (4)
  1. NICARDIPINE HYDROCHLORIDE [Concomitant]
     Route: 048
     Dates: end: 20111006
  2. ATARAX [Concomitant]
     Route: 048
     Dates: end: 20111006
  3. OMEPRAZOLE [Concomitant]
     Route: 048
     Dates: end: 20111006
  4. PLAVIX [Suspect]
     Route: 048
     Dates: start: 20110915, end: 20111007

REACTIONS (1)
  - CARDIAC FAILURE [None]
